FAERS Safety Report 7071150-9 (Version None)
Quarter: 2010Q4

REPORT INFORMATION
  Report Type: 
  Country: None (occurrence: None)
  Receive Date: 20101029
  Receipt Date: 20101019
  Transmission Date: 20110411
  Serious: No
  Sender: FDA-Public Use
  Company Number: US-PFIZER INC-2010133481

PATIENT
  Sex: Female
  Weight: 63.5 kg

DRUGS (4)
  1. LYRICA [Suspect]
     Indication: FIBROMYALGIA
     Dosage: 75 MG, 2X/DAY
     Route: 048
     Dates: start: 20101001, end: 20101001
  2. LYRICA [Suspect]
     Dosage: 150 MG, 2X/DAY
     Route: 048
     Dates: start: 20101001
  3. CYMBALTA [Concomitant]
     Dosage: 90 MG, UNK
  4. XANAX [Concomitant]
     Indication: STRESS
     Dosage: UNK, AS NEEDED

REACTIONS (1)
  - PALPITATIONS [None]
